FAERS Safety Report 15109553 (Version 1)
Quarter: 2018Q3

REPORT INFORMATION
  Report Type: Spontaneous
  Country: US (occurrence: US)
  Receive Date: 20180705
  Receipt Date: 20180705
  Transmission Date: 20181010
  Serious: No
  Sender: FDA-Public Use
  Company Number: US-TEVA-2018-US-918133

PATIENT
  Sex: Female

DRUGS (1)
  1. JUNEL [Suspect]
     Active Substance: ETHINYL ESTRADIOL\NORETHINDRONE ACETATE
     Indication: CONTRACEPTION
     Dosage: 1 MG/0.02 MG
     Route: 065
     Dates: start: 201803

REACTIONS (4)
  - Menstruation irregular [Unknown]
  - Incorrect dose administered [Unknown]
  - Drug dose omission [Unknown]
  - Menorrhagia [Unknown]

NARRATIVE: CASE EVENT DATE: 20180621
